FAERS Safety Report 21788742 (Version 21)
Quarter: 2025Q4

REPORT INFORMATION
  Report Type: Report from Study
  Country: US (occurrence: US)
  Receive Date: 20221228
  Receipt Date: 20251221
  Transmission Date: 20260118
  Serious: Yes (Other)
  Sender: PFIZER
  Company Number: US-PFIZER INC-202201391338

PATIENT
  Age: 68 Year
  Sex: Female
  Weight: 76.644 kg

DRUGS (10)
  1. IBRANCE [Suspect]
     Active Substance: PALBOCICLIB
     Indication: Breast cancer metastatic
     Dosage: 125 MG
  2. IBRANCE [Suspect]
     Active Substance: PALBOCICLIB
     Dosage: 100 MG, CYCLIC (TAKE 1 TABLET (100 MG TOTAL) BY MOUTH DAILY FOR 21 DAYS, THEN OFF 7 DAYS)
     Route: 048
  3. IBRANCE [Suspect]
     Active Substance: PALBOCICLIB
     Dosage: 100 MG, CYCLIC (TAKE 1 TABLET BY MOUTH ON DAYS 1- 21 FOLLOWED BY 14 DAYS OFF EACH 35 DAY CYCLE)
     Route: 048
  4. IBRANCE [Suspect]
     Active Substance: PALBOCICLIB
     Dosage: 75 MG, CYCLIC (21 DAYS ON 7 DAYS OFF)
     Dates: start: 20240209
  5. IBRANCE [Suspect]
     Active Substance: PALBOCICLIB
     Dosage: 75 MG, CYCLIC (DAYS 1 THROUGH 21 FOLLOWED BY 14 DAYS OFF)
     Dates: start: 20241121
  6. IBRANCE [Suspect]
     Active Substance: PALBOCICLIB
     Dosage: 75 MG, CYCLIC (TAKE ONLY ON DAYS 1 THROUGH 21 FOLLOWED BY 7 DAYS OFF EACH 28-DAY CYCLE)
     Dates: start: 20241219
  7. IBRANCE [Suspect]
     Active Substance: PALBOCICLIB
     Dosage: TAKE ONLY ON DAYS 1 THROUGH 21 FOLLOWED BY 14 DAYS OFF EACH 35-DAY CYCLE. TAKE WITH FOOD
     Route: 048
  8. IBRANCE [Suspect]
     Active Substance: PALBOCICLIB
     Dosage: TAKE 1 TABLET BY MOUTH DAILY WITH FOOD FOR 21 DAYS ON THEN 14 DAYS OFF EACH 35 DAY CYCLE
     Route: 048
     Dates: start: 20251027
  9. RESTASIS [Concomitant]
     Active Substance: CYCLOSPORINE
     Dosage: UNK
     Dates: start: 202204
  10. FULVESTRANT [Concomitant]
     Active Substance: FULVESTRANT
     Dosage: UNK

REACTIONS (5)
  - Neutropenia [Unknown]
  - Full blood count decreased [Recovering/Resolving]
  - Visual impairment [Unknown]
  - Off label use [Unknown]
  - Product use issue [Unknown]

NARRATIVE: CASE EVENT DATE: 20241121
